FAERS Safety Report 20024642 (Version 1)
Quarter: 2021Q4

REPORT INFORMATION
  Report Type: Spontaneous
  Country: US (occurrence: US)
  Receive Date: 20211102
  Receipt Date: 20211102
  Transmission Date: 20220304
  Serious: No
  Sender: FDA-Public Use
  Company Number: US-SA-SAC20211026000151

PATIENT
  Age: 56 Year
  Sex: Female

DRUGS (18)
  1. DUPIXENT [Suspect]
     Active Substance: DUPILUMAB
     Indication: Dermatitis atopic
     Dosage: 300 MG, QOW
     Route: 058
     Dates: start: 20210311
  2. HAND SANITIZER NOS [Suspect]
     Active Substance: ALCOHOL\AVOBENZONE\HOMOSALATE\OCTISALATE\OCTOCRYLENE\OXYBENZONE OR ALCOHOL\HOMOSALATE\OCTINOXATE\OCT
     Dosage: UNK
  3. ALBUTEROL [Concomitant]
     Active Substance: ALBUTEROL
     Dosage: UNK
  4. EUCRISA [Concomitant]
     Active Substance: CRISABOROLE
     Dosage: UNK
  5. KETOCONAZOLE [Concomitant]
     Active Substance: KETOCONAZOLE
     Dosage: UNK
  6. LIPITOR [Concomitant]
     Active Substance: ATORVASTATIN CALCIUM
     Dosage: UNK
  7. LORATADINE [Concomitant]
     Active Substance: LORATADINE
     Dosage: UNK
  8. LOSARTAN [Concomitant]
     Active Substance: LOSARTAN
     Dosage: UNK
  9. MELOXICAM [Concomitant]
     Active Substance: MELOXICAM
  10. OMEPRAZOLE [Concomitant]
     Active Substance: OMEPRAZOLE
  11. SINGULAIR [Concomitant]
     Active Substance: MONTELUKAST SODIUM
  12. FERROUS SULFATE [Concomitant]
     Active Substance: FERROUS SULFATE
  13. HYDROCHLOROTHIAZIDE [Concomitant]
     Active Substance: HYDROCHLOROTHIAZIDE
  14. MELFORMIN [Concomitant]
  15. TRIAMCINOLONE [Concomitant]
     Active Substance: TRIAMCINOLONE
  16. VITAMIN B1 [Concomitant]
     Active Substance: THIAMINE HYDROCHLORIDE
  17. VITAMIN C [Concomitant]
     Active Substance: ASCORBIC ACID
  18. VITAMIN D2 [Concomitant]
     Active Substance: ERGOCALCIFEROL

REACTIONS (1)
  - Eczema [Not Recovered/Not Resolved]

NARRATIVE: CASE EVENT DATE: 20211021
